FAERS Safety Report 5453629-6 (Version None)
Quarter: 2007Q3

REPORT INFORMATION
  Report Type: 
  Country: None (occurrence: None)
  Receive Date: 20070917
  Receipt Date: 20070907
  Transmission Date: 20080115
  Serious: Yes (Other)
  Sender: FDA-Public Use
  Company Number: US-JNJFOC-20070402813

PATIENT
  Sex: Female
  Weight: 26.6 kg

DRUGS (16)
  1. INFLIXIMAB, RECOMBINANT [Suspect]
     Route: 042
  2. INFLIXIMAB, RECOMBINANT [Suspect]
     Route: 042
  3. INFLIXIMAB, RECOMBINANT [Suspect]
     Route: 042
  4. INFLIXIMAB, RECOMBINANT [Suspect]
     Route: 042
  5. INFLIXIMAB, RECOMBINANT [Suspect]
     Route: 042
  6. INFLIXIMAB, RECOMBINANT [Suspect]
     Indication: CROHN'S DISEASE
     Route: 042
  7. PENTASA [Concomitant]
  8. ENTOCORT EC [Concomitant]
  9. PREVACID [Concomitant]
     Indication: GASTROOESOPHAGEAL REFLUX DISEASE
  10. SINGULAIR [Concomitant]
  11. IMURAN [Concomitant]
     Indication: CROHN'S DISEASE
     Route: 048
  12. ZYRTEC [Concomitant]
  13. ADVAIR DISKUS 100/50 [Concomitant]
  14. FISH OIL [Concomitant]
  15. PROBIOTIC [Concomitant]
  16. IRON [Concomitant]

REACTIONS (4)
  - ABNORMAL BEHAVIOUR [None]
  - GASTROENTERITIS SALMONELLA [None]
  - LEARNING DISORDER [None]
  - MEMORY IMPAIRMENT [None]
